FAERS Safety Report 9132606 (Version 3)
Quarter: 2013Q2

REPORT INFORMATION
  Report Type: Spontaneous
  Country: US (occurrence: US)
  Receive Date: 20130301
  Receipt Date: 20130501
  Transmission Date: 20140414
  Serious: Yes (Other)
  Sender: FDA-Public Use
  Company Number: US-PFIZER INC-2013071112

PATIENT
  Age: 73 Year
  Sex: Female
  Weight: 68.03 kg

DRUGS (3)
  1. PREMARIN [Suspect]
     Dosage: 5 TENTH OF A GRAM, 3X/WEEK
     Route: 067
  2. ASPIRIN [Concomitant]
     Dosage: 365 MG, 1X/DAY
  3. CALCIUM [Concomitant]
     Dosage: 2 DF, 1X/DAY

REACTIONS (1)
  - Arthritis [Unknown]
